FAERS Safety Report 7488824-8 (Version None)
Quarter: 2011Q2

REPORT INFORMATION
  Report Type: 
  Country: None (occurrence: None)
  Receive Date: 20110518
  Receipt Date: 20110512
  Transmission Date: 20111010
  Serious: Yes (Hospitalization, Other)
  Sender: FDA-Public Use
  Company Number: US-PFIZER INC-2006088635

PATIENT
  Age: 74 Year
  Sex: Male
  Weight: 80 kg

DRUGS (19)
  1. HYDROCHLOROTHIAZIDE [Concomitant]
     Indication: HYPERTENSION
     Dosage: UNK
     Route: 048
  2. LEVAQUIN [Concomitant]
     Indication: PROPHYLAXIS
     Dosage: UNK
     Route: 042
     Dates: start: 20030210
  3. TOPROL-XL [Concomitant]
     Dosage: UNK
     Route: 048
  4. DILANTIN [Suspect]
     Indication: CONVULSION
     Dosage: 400 MG, 1X/DAY
     Route: 048
     Dates: start: 20030211, end: 20030317
  5. PLAVIX [Suspect]
     Indication: CEREBROVASCULAR ACCIDENT
  6. TAMSULOSIN HCL [Concomitant]
     Indication: BENIGN PROSTATIC HYPERPLASIA
     Dosage: UNK
     Route: 048
     Dates: start: 20030201
  7. KEFLEX [Concomitant]
     Dosage: UNK
     Route: 048
  8. PROMETHAZINE [Concomitant]
     Indication: PROPHYLAXIS
     Dosage: UNK
     Route: 065
     Dates: start: 20030210
  9. PLAVIX [Suspect]
     Indication: ATRIAL FIBRILLATION
     Dosage: 75 MG, 1X/DAY
     Route: 048
     Dates: start: 20030205, end: 20030301
  10. PERI-COLACE [Concomitant]
     Dosage: UNK
     Route: 048
     Dates: start: 20030210
  11. CEREBYX [Suspect]
     Indication: CONVULSION
     Dosage: UNK
     Route: 042
     Dates: start: 20030211, end: 20030216
  12. MACROBID [Suspect]
     Indication: URINARY TRACT INFECTION
     Dosage: 100 MG, 2X/DAY
     Route: 048
     Dates: start: 20030309, end: 20030315
  13. K-DUR [Concomitant]
     Indication: HYPERTENSION
     Dosage: UNK
     Route: 048
  14. MICARDIS HCT [Concomitant]
     Indication: HYPERTENSION
     Dosage: UNK
     Route: 048
  15. NORVASC [Concomitant]
     Dosage: UNK
     Route: 048
  16. ACETYL SALICYLIC ACID USP BAT [Concomitant]
     Dosage: UNK
     Route: 048
  17. ZINCATE [Concomitant]
     Dosage: UNK
     Route: 048
     Dates: start: 20030201
  18. ZOFRAN [Concomitant]
     Indication: PROPHYLAXIS
     Dosage: UNK
     Route: 042
     Dates: start: 20030210
  19. CORTISPORIN [Concomitant]
     Indication: PROPHYLAXIS
     Dosage: UNK
     Route: 061
     Dates: start: 20030210

REACTIONS (16)
  - STEVENS-JOHNSON SYNDROME [None]
  - LOSS OF CONSCIOUSNESS [None]
  - RENAL FAILURE [None]
  - CANDIDIASIS [None]
  - ANTICONVULSANT DRUG LEVEL BELOW THERAPEUTIC [None]
  - URINARY BLADDER HAEMORRHAGE [None]
  - URINARY TRACT INFECTION [None]
  - CHEST PAIN [None]
  - DRUG HYPERSENSITIVITY [None]
  - HAEMATURIA [None]
  - MALNUTRITION [None]
  - FALL [None]
  - CONVULSION [None]
  - DYSPHAGIA [None]
  - ANAEMIA [None]
  - MENTAL STATUS CHANGES [None]
